FAERS Safety Report 6974108-0 (Version None)
Quarter: 2010Q3

REPORT INFORMATION
  Report Type: 
  Country: None (occurrence: None)
  Receive Date: 20100909
  Receipt Date: 20100823
  Transmission Date: 20110219
  Serious: Yes (Hospitalization)
  Sender: FDA-Public Use
  Company Number: US-BAYER-201016831NA

PATIENT
  Sex: Female
  Weight: 68 kg

DRUGS (9)
  1. YASMIN [Suspect]
     Indication: PRODUCT USED FOR UNKNOWN INDICATION
     Dates: start: 20020101, end: 20050101
  2. YAZ [Suspect]
     Indication: ORAL CONTRACEPTION
     Route: 048
     Dates: start: 20080401, end: 20090401
  3. NSAID'S [Concomitant]
  4. WELCHOL [Concomitant]
  5. LOESTRIN 1.5/30 [Concomitant]
     Dates: start: 20090524
  6. LOESTRIN 1.5/30 [Concomitant]
     Dosage: #100
     Dates: start: 20010101
  7. LOESTRIN 1.5/30 [Concomitant]
     Dosage: 1.5/30
     Dates: start: 20000101
  8. IMODIUM [Concomitant]
     Indication: DIARRHOEA
  9. ORTHO TRI-CYCLEN [Concomitant]
     Dates: start: 19990101, end: 20000101

REACTIONS (1)
  - CHOLECYSTITIS [None]
